FAERS Safety Report 8620850-5 (Version None)
Quarter: 2012Q3

REPORT INFORMATION
  Report Type: 
  Country: None (occurrence: None)
  Receive Date: 20120824
  Receipt Date: 20120810
  Transmission Date: 20120928
  Serious: Yes (Hospitalization, Other)
  Sender: FDA-Public Use
  Company Number: CA-ROCHE-782577

PATIENT
  Sex: Male
  Weight: 98.518 kg

DRUGS (20)
  1. ACTEMRA [Suspect]
     Route: 042
  2. INSULIN [Concomitant]
     Dosage: 28 UNITS
  3. ACTEMRA [Suspect]
     Indication: RHEUMATOID ARTHRITIS
     Dosage: LAST INFUSION: 28/JUN/2012
     Route: 042
  4. MAGNESIUM [Concomitant]
  5. SPIRONOLACTONE [Concomitant]
  6. DIGOXIN [Concomitant]
  7. BISOPROLOL FUMARATE [Concomitant]
  8. VITAMIN E [Concomitant]
     Dosage: DRUG NAME:VIT E
  9. LIPITOR [Concomitant]
  10. FOLIC ACID [Concomitant]
  11. RABEPRAZOLE SODIUM [Concomitant]
  12. VITAMIN D [Concomitant]
  13. PREDNISONE TAB [Concomitant]
  14. FUROSEMIDE [Concomitant]
  15. ASPIRIN [Concomitant]
  16. ALENDRONATE SODIUM [Concomitant]
     Dosage: DRUG NAME:ALENDRONATE
  17. SELENIUM [Concomitant]
     Dosage: DRUG NAME:VIT E
  18. CALCIUM [Concomitant]
  19. RAMIPRIL [Concomitant]
  20. CITALOPRAM HYDROBROMIDE [Concomitant]

REACTIONS (15)
  - RED BLOOD CELL SEDIMENTATION RATE INCREASED [None]
  - PNEUMONIA [None]
  - MUSCLE STRAIN [None]
  - FALL [None]
  - RHEUMATOID ARTHRITIS [None]
  - OEDEMA PERIPHERAL [None]
  - COUGH [None]
  - PYREXIA [None]
  - PLEURAL EFFUSION [None]
  - RASH [None]
  - DYSPNOEA [None]
  - CELLULITIS [None]
  - CARDIAC DISORDER [None]
  - THROMBOSIS [None]
  - NASOPHARYNGITIS [None]
